FAERS Safety Report 7016328-5 (Version None)
Quarter: 2010Q3

REPORT INFORMATION
  Report Type: 
  Country: None (occurrence: None)
  Receive Date: 20100927
  Receipt Date: 20100917
  Transmission Date: 20110219
  Serious: Yes (Other)
  Sender: FDA-Public Use
  Company Number: JP-PFIZER INC-2010108623

PATIENT
  Age: 68 Year
  Sex: Male

DRUGS (2)
  1. HALCION [Suspect]
     Dosage: 0.25 MG, DAILY
     Route: 048
     Dates: start: 20100820
  2. MYSLEE [Concomitant]
     Dosage: UNK
     Route: 048
     Dates: end: 20100819

REACTIONS (1)
  - LOSS OF CONSCIOUSNESS [None]
